FAERS Safety Report 21129173 (Version 1)
Quarter: 2022Q3

REPORT INFORMATION
  Report Type: Spontaneous
  Country: PL (occurrence: None)
  Receive Date: 20220725
  Receipt Date: 20220725
  Transmission Date: 20221027
  Serious: Yes (Death, Other)
  Sender: FDA-Public Use
  Company Number: PL-ROCHE-3143812

PATIENT
  Age: 67 Year
  Sex: Female

DRUGS (1)
  1. ALECENSA [Suspect]
     Active Substance: ALECTINIB HYDROCHLORIDE
     Indication: Cholangiocarcinoma
     Route: 065

REACTIONS (5)
  - COVID-19 [Fatal]
  - Thrombocytopenia [Unknown]
  - Anaemia [Unknown]
  - Haemoglobin decreased [Unknown]
  - Condition aggravated [Unknown]
